FAERS Safety Report 9296919 (Version 2)
Quarter: 2013Q3

REPORT INFORMATION
  Report Type: Report from Study
  Country: US (occurrence: US)
  Receive Date: 20130518
  Receipt Date: 20130715
  Transmission Date: 20140515
  Serious: Yes (Death, Hospitalization)
  Sender: FDA-Public Use
  Company Number: US-ROCHE-1224596

PATIENT
  Age: 54 Year
  Sex: Male
  Weight: 107 kg

DRUGS (3)
  1. PEG-INTERFERON ALFA 2A [Suspect]
     Indication: CHRONIC HEPATITIS C
     Dosage: MOST RECENT DOSE TAKEN AT 180 MCG,  ON :-02/MAY/2013
     Route: 065
     Dates: start: 20121114
  2. RIBAVIRIN [Suspect]
     Indication: CHRONIC HEPATITIS C
     Dosage: MOST RECENT DOSE AT 200 MG ON 07/MAY/2013
     Route: 065
     Dates: start: 20121114
  3. TELAPREVIR [Suspect]
     Indication: CHRONIC HEPATITIS C
     Dosage: MOST RECENT DOSE TAKEN AT 2250 MG, ON :-02/MAY/2013
     Route: 065
     Dates: start: 20121114

REACTIONS (2)
  - Fungal sepsis [Fatal]
  - Disseminated intravascular coagulation [Not Recovered/Not Resolved]
